FAERS Safety Report 4782606-3 (Version None)
Quarter: 2005Q3

REPORT INFORMATION
  Report Type: 
  Country: None (occurrence: None)
  Receive Date: 20050929
  Receipt Date: 20050421
  Transmission Date: 20060218
  Serious: No
  Sender: FDA-Public Use
  Company Number: 402910

PATIENT
  Sex: Female

DRUGS (8)
  1. COREG [Suspect]
     Indication: DRUG USE FOR UNKNOWN INDICATION
     Dosage: 3.25MG TWICE PER DAY
     Route: 048
     Dates: start: 20030101
  2. SYNTHROID [Concomitant]
  3. LASIX [Concomitant]
  4. ALDACTONE [Concomitant]
  5. ZAROXOLYN [Concomitant]
  6. COUMADIN [Concomitant]
  7. VASOTEC [Concomitant]
  8. PRAVACHOL [Concomitant]

REACTIONS (1)
  - COUGH [None]
